FAERS Safety Report 7916792-0 (Version None)
Quarter: 2011Q4

REPORT INFORMATION
  Report Type: 
  Country: None (occurrence: None)
  Receive Date: 20111114
  Receipt Date: 20111018
  Transmission Date: 20120403
  Serious: Yes (Hospitalization)
  Sender: FDA-Public Use
  Company Number: 2011P1010049

PATIENT
  Age: 77 Year
  Sex: Male

DRUGS (7)
  1. VOGLIBOSE [Concomitant]
  2. CANDESARTAN CILEXETIL [Concomitant]
  3. CHLORPROMAZINE [Concomitant]
  4. GLIMEPIRIDE [Concomitant]
  5. ETIZOLAM [Concomitant]
  6. PIOGLITAZONE [Concomitant]
  7. FAMOTIDINE [Suspect]
     Dosage: PO
     Route: 048

REACTIONS (1)
  - DELIRIUM [None]
